FAERS Safety Report 5299894-X (Version None)
Quarter: 2007Q2

REPORT INFORMATION
  Report Type: 
  Country: None (occurrence: None)
  Receive Date: 20070410
  Receipt Date: 20070329
  Transmission Date: 20071010
  Serious: Yes (Death, Hospitalization, Other)
  Sender: FDA-Public Use
  Company Number: 237399

PATIENT
  Sex: Female

DRUGS (7)
  1. MABTHERA (RITUXIMAB) CONCENTRATE FOR SOLUTION FOR INFUSION [Suspect]
     Indication: VASCULITIS
     Dosage: 1000 MG, X2, UNK
     Dates: start: 20061026, end: 20061109
  2. MABTHERA (RITUXIMAB) CONCENTRATE FOR SOLUTION FOR INFUSION [Suspect]
     Indication: VASCULITIS
     Dosage: 1000 MG, X2, UNK
     Dates: start: 20060301
  3. OPIOID ANALGESICS NOS (NARCOTIC NOS) [Concomitant]
  4. PREDNISOLONE [Concomitant]
  5. AZATHIOPRINE [Concomitant]
  6. WARFARIN SODIUM [Concomitant]
  7. HYDROCORTISONE [Concomitant]

REACTIONS (8)
  - COGNITIVE DISORDER [None]
  - CRYOGLOBULINS PRESENT [None]
  - DIPLOPIA [None]
  - FOOT AMPUTATION [None]
  - GENERAL PHYSICAL HEALTH DETERIORATION [None]
  - JC VIRUS INFECTION [None]
  - NO THERAPEUTIC RESPONSE [None]
  - PROGRESSIVE MULTIFOCAL LEUKOENCEPHALOPATHY [None]
